FAERS Safety Report 4322664-3 (Version None)
Quarter: 2004Q1

REPORT INFORMATION
  Report Type: 
  Country: None (occurrence: None)
  Receive Date: 20040324
  Receipt Date: 20040203
  Transmission Date: 20041129
  Serious: No
  Sender: FDA-Public Use
  Company Number: US-BRISTOL-MYERS SQUIBB COMPANY-12495008

PATIENT
  Age: 39 Year
  Sex: Male

DRUGS (7)
  1. REYATAZ [Suspect]
     Indication: ACQUIRED IMMUNODEFICIENCY SYNDROME
     Route: 048
     Dates: start: 20031210, end: 20031217
  2. NORVIR [Suspect]
     Indication: ACQUIRED IMMUNODEFICIENCY SYNDROME
  3. STAVUDINE [Concomitant]
  4. LAMIVUDINE [Concomitant]
  5. TENOFOVIR [Concomitant]
  6. BACTRIM [Concomitant]
  7. ZOFRAN [Concomitant]

REACTIONS (2)
  - HYPERBILIRUBINAEMIA [None]
  - JAUNDICE [None]
